FAERS Safety Report 7632119-6 (Version None)
Quarter: 2011Q3

REPORT INFORMATION
  Report Type: 
  Country: None (occurrence: None)
  Receive Date: 20110725
  Receipt Date: 20110725
  Transmission Date: 20111222
  Serious: Yes (Other)
  Sender: FDA-Public Use
  Company Number: None

PATIENT
  Sex: Female
  Weight: 53.523 kg

DRUGS (1)
  1. RITE AID ISOPR ACOHOL 70% WIPES [Suspect]
     Indication: THERAPEUTIC SKIN CARE TOPICAL
     Dosage: TOPICAL
     Route: 061
     Dates: start: 20110722, end: 20110722

REACTIONS (3)
  - ERYTHEMA [None]
  - INFECTION [None]
  - FEELING HOT [None]
